FAERS Safety Report 23980086 (Version 1)
Quarter: 2024Q2

REPORT INFORMATION
  Report Type: Spontaneous
  Country: CN (occurrence: CN)
  Receive Date: 20240617
  Receipt Date: 20240617
  Transmission Date: 20240716
  Serious: Yes (Other)
  Sender: FDA-Public Use
  Company Number: CN-ABBVIE-5800143

PATIENT
  Age: 19 Year
  Sex: Female
  Weight: 47 kg

DRUGS (7)
  1. VENETOCLAX [Suspect]
     Active Substance: VENETOCLAX
     Indication: Chemotherapy
     Dosage: 400 MILLIGRAM  D1-D14
     Route: 048
     Dates: start: 20240604, end: 20240609
  2. VENETOCLAX [Suspect]
     Active Substance: VENETOCLAX
     Indication: Chemotherapy
     Dosage: 300 MILLIGRAM
     Route: 048
     Dates: start: 20240610, end: 20240610
  3. CYTARABINE [Suspect]
     Active Substance: CYTARABINE
     Indication: Chemotherapy
     Dosage: 2.5 GRAM, CYTARABINE 2 G/M2D1-D5
     Route: 041
     Dates: start: 20240604, end: 20240608
  4. IDARUBICIN HYDROCHLORIDE [Suspect]
     Active Substance: IDARUBICIN HYDROCHLORIDE
     Indication: Chemotherapy
     Dosage: 8.6 MILLIGRAM, IDARUBICIN 6 MG/M2D3-D4
     Route: 041
     Dates: start: 20240605, end: 20240605
  5. IDARUBICIN HYDROCHLORIDE [Suspect]
     Active Substance: IDARUBICIN HYDROCHLORIDE
     Indication: Chemotherapy
     Dosage: 8.7 MILLIGRAM, IDARUBICIN 6 MG/M2D3-D4
     Route: 041
     Dates: start: 20240606, end: 20240606
  6. FLUDARABINE PHOSPHATE [Suspect]
     Active Substance: FLUDARABINE PHOSPHATE
     Indication: Chemotherapy
     Dosage: 44 MILLIGRAM, FLUDARABINE 30 MG/M2D1-D5
     Route: 041
     Dates: start: 20240607, end: 20240608
  7. FLUDARABINE PHOSPHATE [Suspect]
     Active Substance: FLUDARABINE PHOSPHATE
     Indication: Chemotherapy
     Dosage: 43 MILLIGRAM, FLUDARABINE 30 MG/M2D1-D5
     Route: 041
     Dates: start: 20240604, end: 20240606

REACTIONS (1)
  - Myelosuppression [Not Recovered/Not Resolved]

NARRATIVE: CASE EVENT DATE: 20240610
